FAERS Safety Report 9061520 (Version 1)
Quarter: 2013Q1

REPORT INFORMATION
  Report Type: Spontaneous
  Country: US (occurrence: None)
  Receive Date: 20130211
  Receipt Date: 20130211
  Transmission Date: 20140127
  Serious: Yes (Hospitalization)
  Sender: FDA-Public Use
  Company Number: None

PATIENT
  Sex: Female
  Weight: 67.58 kg

DRUGS (2)
  1. CARBOPLATIN [Suspect]
  2. PACLITAXEL (TAXOL) [Suspect]

REACTIONS (6)
  - Abdominal discomfort [None]
  - Dyspnoea [None]
  - Enterocolitis infectious [None]
  - Anaemia [None]
  - Muscular weakness [None]
  - Fatigue [None]
